FAERS Safety Report 21552902 (Version 1)
Quarter: 2022Q4

REPORT INFORMATION
  Report Type: Spontaneous
  Country: US (occurrence: US)
  Receive Date: 20221104
  Receipt Date: 20221104
  Transmission Date: 20230113
  Serious: No
  Sender: FDA-Public Use
  Company Number: US-BRISTOL-MYERS SQUIBB COMPANY-2022-132437

PATIENT
  Age: 69 Year
  Weight: 62.6 kg

DRUGS (1)
  1. REVLIMID [Suspect]
     Active Substance: LENALIDOMIDE
     Indication: Plasma cell myeloma
     Dosage: DAILY DAY 1-21, 7 DAYS OFF OF 28 DAY CYCLE
     Route: 048
     Dates: start: 20210911

REACTIONS (1)
  - Full blood count decreased [Unknown]
